FAERS Safety Report 20630746 (Version 2)
Quarter: 2022Q4

REPORT INFORMATION
  Report Type: Report from Study
  Country: US (occurrence: US)
  Receive Date: 20220324
  Receipt Date: 20221022
  Transmission Date: 20230113
  Serious: Yes (Other)
  Sender: FDA-Public Use
  Company Number: US-ABBVIE-22K-163-4326927-00

PATIENT
  Sex: Male

DRUGS (1)
  1. HUMIRA [Suspect]
     Active Substance: ADALIMUMAB
     Indication: Psoriasis
     Route: 058

REACTIONS (6)
  - Hyperkeratosis [Recovering/Resolving]
  - Skin ulcer [Recovering/Resolving]
  - Arthritis [Unknown]
  - Pain [Recovering/Resolving]
  - Oedema peripheral [Recovering/Resolving]
  - Cellulitis [Recovering/Resolving]
